FAERS Safety Report 25157914 (Version 1)
Quarter: 2025Q2

REPORT INFORMATION
  Report Type: Spontaneous
  Country: US (occurrence: US)
  Receive Date: 20250404
  Receipt Date: 20250404
  Transmission Date: 20250716
  Serious: No
  Sender: ALEXION PHARMACEUTICALS
  Company Number: US-AstraZeneca-CH-00839973AP

PATIENT

DRUGS (1)
  1. BREZTRI [Suspect]
     Active Substance: BUDESONIDE\FORMOTEROL\GLYCOPYRROLATE
     Route: 065

REACTIONS (6)
  - Product dose omission issue [Unknown]
  - Oxygen saturation decreased [Unknown]
  - Gait inability [Unknown]
  - Eye pain [Unknown]
  - Memory impairment [Unknown]
  - Inappropriate schedule of product administration [Unknown]
